FAERS Safety Report 24248933 (Version 1)
Quarter: 2024Q3

REPORT INFORMATION
  Report Type: Spontaneous
  Country: US (occurrence: None)
  Receive Date: 20240823
  Receipt Date: 20240823
  Transmission Date: 20241017
  Serious: No
  Sender: Public
  Company Number: None

PATIENT
  Age: 22 Year
  Sex: Female

DRUGS (1)
  1. HUMIRA [Suspect]
     Active Substance: ADALIMUMAB
     Indication: Hidradenitis
     Dosage: INJECT 40MG SUBCUTANEOUSLY ONCE A  WEEK AS DIRECTED.    ?
     Route: 058
     Dates: start: 202408

REACTIONS (4)
  - Ankle fracture [None]
  - Infection [None]
  - Accident [None]
  - Therapy interrupted [None]
